FAERS Safety Report 8545800-1 (Version None)
Quarter: 2012Q3

REPORT INFORMATION
  Report Type: 
  Country: None (occurrence: None)
  Receive Date: 20120727
  Receipt Date: 20120719
  Transmission Date: 20120928
  Serious: Yes (Hospitalization)
  Sender: FDA-Public Use
  Company Number: CN-BAXTER-2012BAX012250

PATIENT
  Sex: Male
  Weight: 70 kg

DRUGS (3)
  1. SODIUM LACTATE RINGER'S INJECTION [Suspect]
     Route: 041
     Dates: start: 20090208, end: 20090208
  2. SODIUM CHLORIDE [Suspect]
     Route: 065
  3. GATIFLOXACIN [Suspect]
     Route: 041
     Dates: start: 20090208

REACTIONS (2)
  - SYNCOPE [None]
  - HYPERGLYCAEMIA [None]
